FAERS Safety Report 7788973-0 (Version None)
Quarter: 2011Q3

REPORT INFORMATION
  Report Type: 
  Country: None (occurrence: None)
  Receive Date: 20110930
  Receipt Date: 20110929
  Transmission Date: 20111222
  Serious: Yes (Death)
  Sender: FDA-Public Use
  Company Number: PHEH2011US04947

PATIENT
  Sex: Female

DRUGS (1)
  1. RECLAST [Suspect]
     Dosage: 5 MG ANNUALLY
     Route: 042

REACTIONS (3)
  - BILIARY CIRRHOSIS PRIMARY [None]
  - VARICES OESOPHAGEAL [None]
  - GASTROINTESTINAL HAEMORRHAGE [None]
